FAERS Safety Report 6234975-5 (Version None)
Quarter: 2009Q2

REPORT INFORMATION
  Report Type: 
  Country: None (occurrence: None)
  Receive Date: 20090616
  Receipt Date: 20090608
  Transmission Date: 20091009
  Serious: Yes (Life-Threatening)
  Sender: FDA-Public Use
  Company Number: ADR3542009

PATIENT
  Age: 69 Year
  Sex: Female

DRUGS (11)
  1. METFORMIN HCL [Suspect]
     Indication: DIABETES MELLITUS
     Dosage: 1 GRAM, ORAL
     Route: 048
     Dates: start: 20090110, end: 20090112
  2. GABAPENTIN [Concomitant]
  3. METRONIDAZOLE [Concomitant]
  4. PARACETAMOL [Concomitant]
  5. CLONIDINE [Concomitant]
  6. ENOXAPARIN SODIUM [Concomitant]
  7. DECORTIN [Concomitant]
  8. ZOPICLON [Concomitant]
  9. METOCLOPRAMIDE [Concomitant]
  10. NEXIUM [Concomitant]
  11. MAGNEXIUM [Concomitant]

REACTIONS (1)
  - AGRANULOCYTOSIS [None]
